FAERS Safety Report 18483178 (Version 1)
Quarter: 2020Q4

REPORT INFORMATION
  Report Type: Spontaneous
  Country: US (occurrence: US)
  Receive Date: 20201109
  Receipt Date: 20201109
  Transmission Date: 20210114
  Serious: No
  Sender: FDA-Public Use
  Company Number: US-ROCHE-2492000

PATIENT
  Sex: Male

DRUGS (2)
  1. PULMOZYME [Suspect]
     Active Substance: DORNASE ALFA
     Indication: CYSTIC FIBROSIS
     Dosage: 1MG/ML AMP ROUTE: NEBULIZE, ONGOING: YES
     Route: 045
     Dates: start: 20190826
  2. AMBISOME [Suspect]
     Active Substance: AMPHOTERICIN B
     Indication: CYSTIC FIBROSIS
     Route: 045
     Dates: start: 20190927

REACTIONS (1)
  - Cough [Unknown]
